FAERS Safety Report 7851393-4 (Version None)
Quarter: 2011Q4

REPORT INFORMATION
  Report Type: 
  Country: None (occurrence: None)
  Receive Date: 20111026
  Receipt Date: 20111021
  Transmission Date: 20120403
  Serious: No
  Sender: FDA-Public Use
  Company Number: US-JNJFOC-20111010328

PATIENT
  Sex: Female
  Weight: 124.74 kg

DRUGS (2)
  1. DURAGESIC-100 [Suspect]
     Indication: SPONDYLITIS
     Dosage: STRENGTH OF 25 MCG
     Route: 062
     Dates: start: 20110601
  2. DURAGESIC-100 [Suspect]
     Dosage: STRENGTH OF 100 MCG
     Route: 062
     Dates: start: 20110601

REACTIONS (3)
  - DRUG LEVEL DECREASED [None]
  - PRODUCT QUALITY ISSUE [None]
  - WRONG TECHNIQUE IN DRUG USAGE PROCESS [None]
